FAERS Safety Report 5365126-7 (Version None)
Quarter: 2007Q2

REPORT INFORMATION
  Report Type: 
  Country: None (occurrence: None)
  Receive Date: 20070530
  Receipt Date: 20070113
  Transmission Date: 20071010
  Serious: No
  Sender: FDA-Public Use
  Company Number: 2007PV028416

PATIENT
  Age: 56 Year
  Sex: Female

DRUGS (5)
  1. BYETTA [Suspect]
     Indication: DIABETES MELLITUS NON-INSULIN-DEPENDENT
     Dosage: 5 MCG; BID; SC : 5 MCG; QD; SC : 10 MCG; QD; SC : 5 MCG; QD; SC
     Route: 058
     Dates: start: 20060901, end: 20061101
  2. BYETTA [Suspect]
     Indication: DIABETES MELLITUS NON-INSULIN-DEPENDENT
     Dosage: 5 MCG; BID; SC : 5 MCG; QD; SC : 10 MCG; QD; SC : 5 MCG; QD; SC
     Route: 058
     Dates: start: 20061101, end: 20061201
  3. BYETTA [Suspect]
     Indication: DIABETES MELLITUS NON-INSULIN-DEPENDENT
     Dosage: 5 MCG; BID; SC : 5 MCG; QD; SC : 10 MCG; QD; SC : 5 MCG; QD; SC
     Route: 058
     Dates: start: 20061201, end: 20070101
  4. BYETTA [Suspect]
     Indication: DIABETES MELLITUS NON-INSULIN-DEPENDENT
     Dosage: 5 MCG; BID; SC : 5 MCG; QD; SC : 10 MCG; QD; SC : 5 MCG; QD; SC
     Route: 058
     Dates: start: 20070112
  5. PRANDIN [Concomitant]

REACTIONS (3)
  - BLOOD GLUCOSE DECREASED [None]
  - BLOOD GLUCOSE INCREASED [None]
  - NAUSEA [None]
